FAERS Safety Report 5704223-0 (Version None)
Quarter: 2008Q2

REPORT INFORMATION
  Report Type: 
  Country: None (occurrence: None)
  Receive Date: 20080414
  Receipt Date: 20080225
  Transmission Date: 20081010
  Serious: No
  Sender: FDA-Public Use
  Company Number: US-BAYER-200815559NA

PATIENT
  Age: 59 Year
  Sex: Female
  Weight: 64 kg

DRUGS (5)
  1. ULTRAVIST 370 [Suspect]
     Indication: COMPUTERISED TOMOGRAM ABDOMEN
     Route: 042
     Dates: start: 20080225, end: 20080225
  2. ZOMETA [Concomitant]
  3. HERCEPTIN [Concomitant]
  4. MOTRIN [Concomitant]
  5. TYLENOL (CAPLET) [Concomitant]

REACTIONS (2)
  - PRURITUS [None]
  - URTICARIA [None]
